FAERS Safety Report 5188626-1 (Version None)
Quarter: 2006Q4

REPORT INFORMATION
  Report Type: 
  Country: None (occurrence: None)
  Receive Date: 20061221
  Receipt Date: 20060911
  Transmission Date: 20070319
  Serious: No
  Sender: FDA-Public Use
  Company Number: US-AMGEN-KDL193101

PATIENT
  Sex: Female

DRUGS (2)
  1. ENBREL [Suspect]
     Indication: RHEUMATOID ARTHRITIS
     Route: 058
     Dates: start: 20050601
  2. SULFASALAZINE [Concomitant]

REACTIONS (5)
  - COUGH [None]
  - HEADACHE [None]
  - PYREXIA [None]
  - SINUS CONGESTION [None]
  - URTICARIA GENERALISED [None]
